FAERS Safety Report 4539930-9 (Version None)
Quarter: 2004Q4

REPORT INFORMATION
  Report Type: 
  Country: None (occurrence: None)
  Receive Date: 20041223
  Receipt Date: 20041210
  Transmission Date: 20050328
  Serious: Yes (Death, Other)
  Sender: FDA-Public Use
  Company Number: 2004107069

PATIENT
  Age: 70 Year
  Sex: Male

DRUGS (4)
  1. VFEND [Suspect]
     Indication: ILL-DEFINED DISORDER
     Dosage: INTRAVENOUS
     Route: 042
  2. PIP/TAZO (PIPERACILLIN SODIUM, TAZOBACTAM SODIUM) [Concomitant]
  3. VANCOMYCIN [Concomitant]
  4. ACYCLOVIR [Concomitant]

REACTIONS (7)
  - AMMONIA INCREASED [None]
  - BACTERIAL SEPSIS [None]
  - CONFUSIONAL STATE [None]
  - ESCHERICHIA INFECTION [None]
  - FUNGAL INFECTION [None]
  - HERPES SIMPLEX [None]
  - SOMNOLENCE [None]
